FAERS Safety Report 9767979 (Version 1)
Quarter: 2013Q4

REPORT INFORMATION
  Report Type: Spontaneous
  Country: US (occurrence: US)
  Receive Date: 20131217
  Receipt Date: 20131217
  Transmission Date: 20140711
  Serious: No
  Sender: FDA-Public Use
  Company Number: US-009507513-1312USA002415

PATIENT
  Sex: Male

DRUGS (1)
  1. AZASITE [Suspect]
     Route: 047

REACTIONS (3)
  - Eye pain [Not Recovered/Not Resolved]
  - Eyelid disorder [Not Recovered/Not Resolved]
  - Drug dose omission [Unknown]
